FAERS Safety Report 5209722-6 (Version None)
Quarter: 2007Q1

REPORT INFORMATION
  Report Type: 
  Country: None (occurrence: None)
  Receive Date: 20070116
  Receipt Date: 20070109
  Transmission Date: 20070707
  Serious: Yes (Hospitalization)
  Sender: FDA-Public Use
  Company Number: FR-BOEHRINGER INGELHEIM PHARMACEUTICALS, INC.-2006-FF-01278FF

PATIENT
  Age: 65 Year
  Sex: Female

DRUGS (2)
  1. MICARDIS [Suspect]
     Route: 048
  2. LOZOL [Concomitant]
     Route: 048

REACTIONS (1)
  - TEMPORAL ARTERITIS [None]
